FAERS Safety Report 7496889-2 (Version None)
Quarter: 2011Q2

REPORT INFORMATION
  Report Type: 
  Country: None (occurrence: None)
  Receive Date: 20110516
  Receipt Date: 20110510
  Transmission Date: 20111010
  Serious: Yes (Other)
  Sender: FDA-Public Use
  Company Number: GB-ACCORD-009095

PATIENT
  Age: 33 Year
  Sex: Female

DRUGS (12)
  1. ETOPOSIDE [Suspect]
     Indication: BURKITT'S LYMPHOMA
  2. VINCRISTINE [Suspect]
     Indication: BURKITT'S LYMPHOMA
  3. EMTRICITABINE [Concomitant]
  4. METHOTREXATE [Suspect]
     Indication: BURKITT'S LYMPHOMA
  5. CYCLOPHOSPHAMIDE [Suspect]
     Indication: BURKITT'S LYMPHOMA
  6. IFOSFAMIDE [Suspect]
     Indication: BURKITT'S LYMPHOMA
  7. DOXORUBICIN HCL [Suspect]
     Indication: BURKITT'S LYMPHOMA
     Dosage: INTRAVENOUS
     Route: 042
  8. CYTARABINE [Suspect]
     Indication: BURKITT'S LYMPHOMA
  9. ETRAVIRINE(ETRAVIRINE) [Concomitant]
  10. RALTEGRAVIR(RALTEGRAVIR) [Concomitant]
  11. TENOFOVIR DISOPROXIL FUMARATE [Concomitant]
  12. ANTIPSYCHOTICS(ANTIPSYCHOTICS) [Concomitant]

REACTIONS (3)
  - PNEUMOCYSTIS JIROVECI PNEUMONIA [None]
  - OESOPHAGEAL CANDIDIASIS [None]
  - MUCOSAL INFLAMMATION [None]
